FAERS Safety Report 7707805-X (Version None)
Quarter: 2011Q3

REPORT INFORMATION
  Report Type: 
  Country: None (occurrence: None)
  Receive Date: 20110824
  Receipt Date: 20110816
  Transmission Date: 20111222
  Serious: Yes (Hospitalization)
  Sender: FDA-Public Use
  Company Number: PHHY2011US52059

PATIENT
  Sex: Female

DRUGS (9)
  1. PREMARIN [Concomitant]
     Dosage: UNK UKN, UNK
  2. LANSOPRAZOLE [Concomitant]
     Dosage: UNK UKN, UNK
  3. NORVASC [Suspect]
     Dosage: UNK UKN, UNK
  4. LOSARTAN POTASSIUM [Suspect]
     Dosage: 50 MG, UNK
  5. PROGESTERONE [Concomitant]
     Dosage: UNK UKN, UNK
  6. SYNTHROID [Concomitant]
     Dosage: UNK UKN, UNK
  7. TEKAMLO [Suspect]
     Indication: BLOOD PRESSURE INCREASED
     Dosage: 150/5 MG, QD
  8. METOPROLOL [Concomitant]
     Dosage: 100 MG, UNK
  9. MECLIZINE [Suspect]
     Dosage: UNK UKN, UNK

REACTIONS (12)
  - DIZZINESS [None]
  - PYREXIA [None]
  - SWELLING [None]
  - ASTHENIA [None]
  - NERVOUSNESS [None]
  - ARTHROPATHY [None]
  - VERTIGO [None]
  - BLOOD PRESSURE INCREASED [None]
  - MALAISE [None]
  - SOMNOLENCE [None]
  - HYPERGLYCAEMIA [None]
  - HYPERHIDROSIS [None]
